FAERS Safety Report 24426209 (Version 2)
Quarter: 2024Q4

REPORT INFORMATION
  Report Type: Spontaneous
  Country: US (occurrence: US)
  Receive Date: 20241011
  Receipt Date: 20241028
  Transmission Date: 20250115
  Serious: No
  Sender: Unknown Manufacturer
  Company Number: US-862174955-ML2024-05215

PATIENT
  Age: 79 Year
  Sex: Male
  Weight: 97 kg

DRUGS (2)
  1. DORZOLAMIDE HYDROCHLORIDE OPHTHALMIC SOLUTION [Suspect]
     Active Substance: DORZOLAMIDE HYDROCHLORIDE
     Indication: Glaucoma
     Dosage: DOSE: ONE DROP IN ONE EYE
     Route: 047
     Dates: start: 20240811
  2. TIMOLOL [Concomitant]
     Active Substance: TIMOLOL\TIMOLOL MALEATE
     Indication: Product used for unknown indication
     Dosage: ONE DROP IN THE MORNING
     Route: 047

REACTIONS (7)
  - Ocular discomfort [Unknown]
  - Eye pain [Not Recovered/Not Resolved]
  - Product packaging quantity issue [Unknown]
  - Product dose omission issue [Unknown]
  - Product quality issue [Unknown]
  - Extra dose administered [Unknown]
  - Inability to afford medication [Unknown]

NARRATIVE: CASE EVENT DATE: 20240101
